FAERS Safety Report 25665826 (Version 1)
Quarter: 2025Q3

REPORT INFORMATION
  Report Type: Spontaneous
  Country: US (occurrence: None)
  Receive Date: 20250811
  Receipt Date: 20250811
  Transmission Date: 20251021
  Serious: Yes (Hospitalization)
  Sender: FDA-CTU
  Company Number: None

PATIENT
  Age: 66 Year
  Sex: Female

DRUGS (6)
  1. STEQEYMA [Suspect]
     Active Substance: USTEKINUMAB-STBA
     Indication: Crohn^s disease
     Dosage: FREQUENCY : MONTHLY;?
     Route: 058
     Dates: start: 20250625
  2. AMLODIPINE TAB [Concomitant]
  3. ESCITALOPRAM [Concomitant]
     Active Substance: ESCITALOPRAM OXALATE
  4. HYDROCHLOROT TAB [Concomitant]
  5. QUETIAPINE TAB [Concomitant]
  6. STELARA [Concomitant]
     Active Substance: USTEKINUMAB

REACTIONS (4)
  - Diarrhoea [None]
  - Weight increased [None]
  - Loss of personal independence in daily activities [None]
  - Infection [None]

NARRATIVE: CASE EVENT DATE: 20250701
